FAERS Safety Report 16357195 (Version 1)
Quarter: 2019Q2

REPORT INFORMATION
  Report Type: Spontaneous
  Country: CN (occurrence: CN)
  Receive Date: 20190527
  Receipt Date: 20190527
  Transmission Date: 20190711
  Serious: Yes (Other)
  Sender: FDA-Public Use
  Company Number: CN-ACCORD-129185

PATIENT
  Age: 59 Year
  Sex: Male

DRUGS (2)
  1. CISPLATIN. [Suspect]
     Active Substance: CISPLATIN
     Indication: LUNG CARCINOMA CELL TYPE UNSPECIFIED STAGE II
     Dosage: ON DAYS 1 TO 3
  2. DOCETAXEL. [Suspect]
     Active Substance: DOCETAXEL
     Indication: LUNG CARCINOMA CELL TYPE UNSPECIFIED STAGE II
     Dosage: ON DAY 1

REACTIONS (1)
  - Leukaemia [Unknown]
